FAERS Safety Report 7807328-3 (Version None)
Quarter: 2011Q4

REPORT INFORMATION
  Report Type: 
  Country: None (occurrence: None)
  Receive Date: 20111011
  Receipt Date: 20111006
  Transmission Date: 20120403
  Serious: Yes (Hospitalization)
  Sender: FDA-Public Use
  Company Number: US-BRISTOL-MYERS SQUIBB COMPANY-16140089

PATIENT
  Age: 43 Year
  Sex: Male

DRUGS (1)
  1. SUSTIVA [Suspect]
     Dates: start: 20110720

REACTIONS (2)
  - BLOOD PRESSURE INCREASED [None]
  - RASH [None]
